FAERS Safety Report 6600640-5 (Version None)
Quarter: 2010Q1

REPORT INFORMATION
  Report Type: 
  Country: None (occurrence: None)
  Receive Date: 20100224
  Receipt Date: 20100217
  Transmission Date: 20100710
  Serious: Yes (Life-Threatening, Hospitalization)
  Sender: FDA-Public Use
  Company Number: US-AMGEN-US393442

PATIENT
  Sex: Male

DRUGS (4)
  1. PANITUMUMAB [Suspect]
     Indication: COLORECTAL CANCER
     Route: 042
     Dates: start: 20100127, end: 20100210
  2. IRINOTECAN HCL [Suspect]
     Route: 042
     Dates: start: 20100127
  3. 5-FU [Suspect]
     Route: 042
     Dates: start: 20100127
  4. LEUCOVORIN CALCIUM [Suspect]
     Route: 042
     Dates: start: 20100127

REACTIONS (4)
  - FEBRILE NEUTROPENIA [None]
  - HYPOTENSION [None]
  - HYPOXIA [None]
  - TACHYCARDIA [None]
